FAERS Safety Report 9110746 (Version 2)
Quarter: 2014Q1

REPORT INFORMATION
  Report Type: Spontaneous
  Country: US (occurrence: US)
  Receive Date: 20130219
  Receipt Date: 20140213
  Transmission Date: 20141002
  Serious: Yes (Other)
  Sender: FDA-Public Use
  Company Number: US-BRISTOL-MYERS SQUIBB COMPANY-17076324

PATIENT
  Age: 40 Year
  Sex: Female
  Weight: 56.23 kg

DRUGS (4)
  1. ORENCIA [Suspect]
     Dosage: LAST INF: SEP12,26OCT12,25JAN13. INF:3 ON 4AUG12
     Route: 042
  2. METHOTREXATE [Suspect]
  3. SOLU-MEDROL [Concomitant]
  4. ULTRAM [Concomitant]

REACTIONS (3)
  - Influenza [Unknown]
  - Drug ineffective [Unknown]
  - Nasopharyngitis [Unknown]
